FAERS Safety Report 13131285 (Version 1)
Quarter: 2017Q1

REPORT INFORMATION
  Report Type: Spontaneous
  Country: US (occurrence: US)
  Receive Date: 20170119
  Receipt Date: 20170119
  Transmission Date: 20170428
  Serious: No
  Sender: FDA-Public Use
  Company Number: US-BAYER-2017-010670

PATIENT
  Age: 46 Year
  Sex: Female

DRUGS (1)
  1. MIRENA [Suspect]
     Active Substance: LEVONORGESTREL
     Indication: PNEUMOTHORAX
     Dosage: 20 MCG/24HR, CONT
     Route: 015
     Dates: start: 20160822

REACTIONS (5)
  - Depression [None]
  - Off label use [None]
  - Anxiety [None]
  - Pulmonary pain [None]
  - Pre-existing condition improved [None]
